FAERS Safety Report 8530441-2 (Version None)
Quarter: 2012Q3

REPORT INFORMATION
  Report Type: 
  Country: None (occurrence: None)
  Receive Date: 20120723
  Receipt Date: 20120719
  Transmission Date: 20120928
  Serious: Yes (Hospitalization, Other)
  Sender: FDA-Public Use
  Company Number: DE-SANOFI-AVENTIS-2012SA051437

PATIENT
  Sex: Female

DRUGS (4)
  1. FERRLECIT INJECTION [Suspect]
     Route: 065
     Dates: start: 20110101, end: 20110101
  2. FERRLECIT INJECTION [Suspect]
     Indication: ANAEMIA
     Route: 065
     Dates: start: 20110101
  3. FERRLECIT INJECTION [Suspect]
     Route: 065
     Dates: start: 20110101
  4. FERRLECIT INJECTION [Suspect]
     Route: 065
     Dates: start: 20110101, end: 20110101

REACTIONS (3)
  - PROCTITIS [None]
  - INTESTINAL HAEMORRHAGE [None]
  - ABDOMINAL PAIN [None]
